FAERS Safety Report 6313339-X (Version None)
Quarter: 2009Q3

REPORT INFORMATION
  Report Type: 
  Country: None (occurrence: None)
  Receive Date: 20090818
  Receipt Date: 20090812
  Transmission Date: 20100115
  Serious: Yes (Hospitalization)
  Sender: FDA-Public Use
  Company Number: B0589142A

PATIENT
  Sex: Female

DRUGS (4)
  1. VALTREX [Suspect]
     Indication: HERPES ZOSTER
     Route: 048
     Dates: start: 20090526, end: 20090526
  2. PRIMPERAN [Concomitant]
  3. KAVEPENIN [Concomitant]
  4. MOLLIPECT [Concomitant]

REACTIONS (6)
  - ASTHENIA [None]
  - DYSSTASIA [None]
  - EATING DISORDER [None]
  - FATIGUE [None]
  - NAUSEA [None]
  - SYNCOPE [None]
